FAERS Safety Report 9774858 (Version 2)
Quarter: 2013Q4

REPORT INFORMATION
  Report Type: Spontaneous
  Country: US (occurrence: US)
  Receive Date: 20131220
  Receipt Date: 20131220
  Transmission Date: 20140711
  Serious: No
  Sender: FDA-Public Use
  Company Number: US-GLAXOSMITHKLINE-A0889110A

PATIENT
  Age: 56 Year
  Sex: Male

DRUGS (4)
  1. AVODART [Suspect]
     Indication: BENIGN PROSTATIC HYPERPLASIA
     Dosage: .5MG PER DAY
     Route: 048
     Dates: start: 200710
  2. PROZAC [Suspect]
  3. LISINOPRIL [Concomitant]
  4. TESTOSTERONE [Concomitant]

REACTIONS (3)
  - Headache [Unknown]
  - Sexual dysfunction [Unknown]
  - Asthenia [Unknown]
